FAERS Safety Report 26088763 (Version 3)
Quarter: 2025Q4

REPORT INFORMATION
  Report Type: Report from Study
  Country: US (occurrence: US)
  Receive Date: 20251125
  Receipt Date: 20251216
  Transmission Date: 20260117
  Serious: Yes (Hospitalization, Other)
  Sender: ALNYLAM PHARMACEUTICALS
  Company Number: US-ALNYLAM PHARMACEUTICALS, INC.-ALN-2025-006991

PATIENT

DRUGS (3)
  1. GIVLAARI [Suspect]
     Active Substance: GIVOSIRAN SODIUM
     Indication: Porphyria acute
     Dosage: UNK
     Route: 065
  2. GIVLAARI [Suspect]
     Active Substance: GIVOSIRAN SODIUM
     Dosage: UNK
     Route: 065
  3. PANHEMATIN [Concomitant]
     Active Substance: HEMIN
     Indication: Product used for unknown indication
     Route: 065

REACTIONS (12)
  - Sepsis [Unknown]
  - Osteomyelitis [Unknown]
  - Liver function test increased [Recovering/Resolving]
  - Prothrombin time prolonged [Unknown]
  - Platelet count decreased [Not Recovered/Not Resolved]
  - Nodule [Unknown]
  - International normalised ratio increased [Unknown]
  - Gait disturbance [Unknown]
  - Product dose omission issue [Unknown]
  - Product dose omission issue [Unknown]
  - Body temperature increased [Unknown]
  - Adrenal mass [Unknown]
